FAERS Safety Report 10753413 (Version 6)
Quarter: 2016Q2

REPORT INFORMATION
  Report Type: Report from Study
  Country: TH (occurrence: TH)
  Receive Date: 20150131
  Receipt Date: 20160517
  Transmission Date: 20160815
  Serious: Yes (Hospitalization)
  Sender: FDA-Public Use
  Company Number: TH-ROCHE-1154459

PATIENT
  Age: 61 Year
  Sex: Male
  Weight: 52 kg

DRUGS (22)
  1. PIRITON [Concomitant]
     Active Substance: CHLORPHENIRAMINE MALEATE
     Indication: PREMEDICATION
     Route: 065
     Dates: start: 20120711, end: 20121127
  2. ACYCLOVIR. [Concomitant]
     Active Substance: ACYCLOVIR
     Route: 065
     Dates: start: 20120712, end: 20121227
  3. DOXORUBICIN [Suspect]
     Active Substance: DOXORUBICIN
     Indication: DIFFUSE LARGE B-CELL LYMPHOMA
     Dosage: MOST RECENT DOSE PRIOR TO SAE: 24/OCT/2012 (80MG) AND ON 27/NOV/2012 (78 MG)
     Route: 042
     Dates: start: 20120712
  4. DEXAMETHASONE. [Concomitant]
     Active Substance: DEXAMETHASONE
     Indication: PREMEDICATION
     Route: 065
     Dates: start: 20120711, end: 20121127
  5. ATARAX [Concomitant]
     Active Substance: HYDROXYZINE\HYDROXYZINE HYDROCHLORIDE
     Indication: RASH
     Route: 065
     Dates: start: 20120724
  6. MOTILIUM [Concomitant]
     Active Substance: DOMPERIDONE
     Indication: PROPHYLAXIS OF NAUSEA AND VOMITING
     Route: 065
     Dates: start: 20120912, end: 20121114
  7. IVERMECTIN. [Concomitant]
     Active Substance: IVERMECTIN
     Indication: STRONGYLOIDIASIS
     Route: 065
     Dates: start: 20121120, end: 20121122
  8. ONSIA [Concomitant]
     Indication: PREMEDICATION
     Route: 065
     Dates: start: 20120712, end: 20121127
  9. TRANXENE T-TAB [Concomitant]
     Active Substance: CLORAZEPATE DIPOTASSIUM
     Indication: INSOMNIA
     Route: 065
     Dates: start: 20120724, end: 20121024
  10. VINCRISTINE [Suspect]
     Active Substance: VINCRISTINE
     Indication: DIFFUSE LARGE B-CELL LYMPHOMA
     Dosage: MOST RECENT DOSE PRIOR TO SAE: 24/OCT/2013 AND 27/NOV/2012: 2 MG
     Route: 042
     Dates: start: 20120712
  11. BACTRIM [Concomitant]
     Active Substance: SULFAMETHOXAZOLE\TRIMETHOPRIM
     Route: 065
     Dates: start: 20120712, end: 20121227
  12. CYPROHEPTADINE. [Concomitant]
     Active Substance: CYPROHEPTADINE
     Route: 065
     Dates: start: 20120712, end: 20130612
  13. SERETIDE [Concomitant]
     Active Substance: FLUTICASONE PROPIONATE\SALMETEROL XINAFOATE
     Indication: ASTHMA
     Route: 065
     Dates: start: 20120724
  14. CYCLOPHOSPHAMIDE. [Suspect]
     Active Substance: CYCLOPHOSPHAMIDE
     Indication: DIFFUSE LARGE B-CELL LYMPHOMA
     Dosage: MOST RECENT DOSE  PRIOR TO SAE: 24/OCT/2012 (1245MG) AND 27/NOV/2012 (1170MG).
     Route: 042
     Dates: start: 20120712
  15. ONSIA [Concomitant]
     Indication: VOMITING
  16. AMITRIP [Concomitant]
     Active Substance: AMITRIPTYLINE HYDROCHLORIDE
     Indication: PAIN PROPHYLAXIS
     Route: 065
     Dates: start: 20121024, end: 20121127
  17. RANIDINE [Concomitant]
     Indication: HYPERSENSITIVITY
     Route: 065
     Dates: start: 20120724, end: 20130219
  18. OBINUTUZUMAB [Suspect]
     Active Substance: OBINUTUZUMAB
     Indication: DIFFUSE LARGE B-CELL LYMPHOMA
     Dosage: MOST RECENT DOSE PRIOR TO SAE ON 24/OCT/2012: 4MG/ML IN 250 ML?MOST RECENT DOSE PRIOR TO SAE ON 27/N
     Route: 042
     Dates: start: 20120711
  19. PREDNISONE. [Suspect]
     Active Substance: PREDNISONE
     Indication: DIFFUSE LARGE B-CELL LYMPHOMA
     Dosage: MOST RECENT DOSE PRIOR TO SAE: 28/OCT2012 AND ON 01/DEC/2012  (100 MG).
     Route: 048
     Dates: start: 20120712
  20. SENOKOT [Concomitant]
     Active Substance: SENNOSIDES
     Indication: CONSTIPATION PROPHYLAXIS
     Route: 065
     Dates: start: 20120712, end: 20121127
  21. ALBENDAZOLE [Concomitant]
     Active Substance: ALBENDAZOLE
     Indication: STRONGYLOIDIASIS
     Route: 065
     Dates: start: 20121116, end: 20121120
  22. RANIDINE [Concomitant]
     Indication: HYPERSENSITIVITY
     Route: 065
     Dates: start: 20120724, end: 20130219

REACTIONS (6)
  - Febrile neutropenia [Recovered/Resolved]
  - Bronchospasm [Recovered/Resolved]
  - Bacterial sepsis [Recovered/Resolved]
  - Thrombocytopenia [Recovered/Resolved]
  - Diarrhoea infectious [Recovered/Resolved]
  - Septic shock [Recovered/Resolved]

NARRATIVE: CASE EVENT DATE: 20121109
